FAERS Safety Report 4541105-4 (Version None)
Quarter: 2004Q4

REPORT INFORMATION
  Report Type: 
  Country: None (occurrence: None)
  Receive Date: 20041228
  Receipt Date: 20041215
  Transmission Date: 20050328
  Serious: Yes (Life-Threatening, Hospitalization)
  Sender: FDA-Public Use
  Company Number: WAES 0410BRA00332

PATIENT
  Age: 74 Year
  Sex: Female

DRUGS (2)
  1. ROFECOXIB [Suspect]
     Indication: RHEUMATOID ARTHRITIS
     Dosage: 1 MG/DAILY
     Route: 048
     Dates: start: 20040504, end: 20040914
  2. POST-TRIAL THERAPY [Concomitant]

REACTIONS (2)
  - CORONARY ARTERY INSUFFICIENCY [None]
  - VENTRICULAR HYPOKINESIA [None]
